FAERS Safety Report 16240181 (Version 8)
Quarter: 2020Q2

REPORT INFORMATION
  Report Type: Report from Study
  Country: None (occurrence: JP)
  Receive Date: 20190425
  Receipt Date: 20200611
  Transmission Date: 20200713
  Serious: Yes (Hospitalization)
  Sender: FDA-Public Use
  Company Number: JP-BAUSCH-BL-2019-011233

PATIENT
  Age: 52 Year
  Sex: Male

DRUGS (9)
  1. OXAROL [Concomitant]
     Active Substance: MAXACALCITOL
     Indication: PRODUCT USED FOR UNKNOWN INDICATION
  2. LIDOMEX [Concomitant]
     Active Substance: PREDNISOLONE VALERATE ACETATE
     Indication: PRODUCT USED FOR UNKNOWN INDICATION
     Dosage: EXTERNAL USE
  3. AMLODIPINE [Concomitant]
     Active Substance: AMLODIPINE BESYLATE
     Indication: PRODUCT USED FOR UNKNOWN INDICATION
  4. LUMICEF [Suspect]
     Active Substance: BRODALUMAB
     Dosage: SYRINGE, SINGLE
     Route: 058
     Dates: start: 20180618, end: 20180618
  5. ANTEBATE [Concomitant]
     Active Substance: BETAMETHASONE DIPROPIONATE
     Indication: PRODUCT USED FOR UNKNOWN INDICATION
  6. LUMICEF [Suspect]
     Active Substance: BRODALUMAB
     Dosage: SYRINGE, DURATION: 2 MONTHS 10 DAYS
     Route: 058
     Dates: start: 20180330, end: 20180608
  7. OLMESARTAN [Concomitant]
     Active Substance: OLMESARTAN
     Indication: PRODUCT USED FOR UNKNOWN INDICATION
  8. LUMICEF [Suspect]
     Active Substance: BRODALUMAB
     Indication: PSORIASIS
     Dosage: SYRINGE
     Route: 058
     Dates: start: 20180302, end: 20180316
  9. ANTEBATE [Concomitant]
     Active Substance: BETAMETHASONE DIPROPIONATE
     Dosage: LOTION (EXCEPT LOTION FOR EYE)

REACTIONS (2)
  - Cellulitis [Recovering/Resolving]
  - Pustular psoriasis [Unknown]

NARRATIVE: CASE EVENT DATE: 20180530
